FAERS Safety Report 21607901 (Version 1)
Quarter: 2022Q4

REPORT INFORMATION
  Report Type: Spontaneous
  Country: US (occurrence: US)
  Receive Date: 20221117
  Receipt Date: 20221117
  Transmission Date: 20230112
  Serious: No
  Sender: FDA-Public Use
  Company Number: US-IDORSIA-002057-2022-US

PATIENT
  Sex: Female

DRUGS (1)
  1. QUVIVIQ [Suspect]
     Active Substance: DARIDOREXANT
     Indication: Insomnia
     Route: 065

REACTIONS (6)
  - Therapeutic product effect incomplete [Unknown]
  - Nightmare [Unknown]
  - Fall [Unknown]
  - Disorientation [Unknown]
  - Fatigue [Unknown]
  - Somnolence [Unknown]
